FAERS Safety Report 7675124-6 (Version None)
Quarter: 2011Q3

REPORT INFORMATION
  Report Type: 
  Country: None (occurrence: None)
  Receive Date: 20110810
  Receipt Date: 20110801
  Transmission Date: 20111222
  Serious: Yes (Hospitalization)
  Sender: FDA-Public Use
  Company Number: JP-MERCK-1106USA02849

PATIENT
  Age: 62 Year
  Sex: Female

DRUGS (8)
  1. OXINORM (OXYCODONE HYDROCHLORIDE) [Concomitant]
     Indication: CANCER PAIN
     Dosage: AT THE PAIN
     Route: 048
     Dates: start: 20110308, end: 20110611
  2. AMARYL [Concomitant]
     Indication: DIABETES MELLITUS
     Route: 048
     Dates: start: 20100824, end: 20110614
  3. AVASTIN [Concomitant]
     Indication: RECTAL CANCER
     Dosage: IT IS THREE COOL OF TWO WEEKS (COOL ONE)
     Route: 041
     Dates: start: 20110222, end: 20110607
  4. TS-1 [Concomitant]
     Indication: RECTAL CANCER
     Dosage: IT IS THREE COOL OF YAS (COOL ONE) FOR TWO WEEKS ADMINISTERED FOR TWO WEEKS.
     Route: 048
     Dates: start: 20110222, end: 20110606
  5. OXYCONTIN [Concomitant]
     Dosage: 5MG8? 10MG NEMUMAE 20?
     Route: 048
     Dates: start: 20110308, end: 20110611
  6. VOLTAREN [Concomitant]
     Indication: CANCER PAIN
     Route: 048
     Dates: start: 20101005, end: 20110611
  7. JANUVIA [Suspect]
     Indication: DIABETES MELLITUS
     Route: 048
     Dates: start: 20110419, end: 20110614
  8. IRINOTECAN HYDROCHLORIDE [Concomitant]
     Indication: RECTAL CANCER
     Dosage: IT IS THREE COOL OF TWO WEEKS (COOL ONE)
     Route: 041
     Dates: start: 20110222, end: 20110607

REACTIONS (1)
  - PANCYTOPENIA [None]
